FAERS Safety Report 5729443-0 (Version None)
Quarter: 2008Q2

REPORT INFORMATION
  Report Type: 
  Country: None (occurrence: None)
  Receive Date: 20080506
  Receipt Date: 20080423
  Transmission Date: 20081010
  Serious: Yes (Hospitalization)
  Sender: FDA-Public Use
  Company Number: US-ELI_LILLY_AND_COMPANY-US200804006813

PATIENT
  Sex: Female

DRUGS (5)
  1. EXENATIDE [Suspect]
     Indication: TYPE 2 DIABETES MELLITUS
     Dosage: 5 UG, 2/D
     Route: 058
     Dates: start: 20071001, end: 20071101
  2. EXENATIDE [Suspect]
     Dosage: 10 MG, 2/D
     Route: 058
     Dates: start: 20071101
  3. LANTUS [Concomitant]
     Dosage: 16 U, EACH EVENING
     Route: 058
  4. AMARYL [Concomitant]
     Dosage: 4 MG, 2/D
     Route: 048
  5. GLUCOPHAGE [Concomitant]
     Dosage: 1500 MG, UNK
     Route: 048

REACTIONS (5)
  - ANAL SPASM [None]
  - DEFAECATION URGENCY [None]
  - HAEMORRHOIDS [None]
  - NAUSEA [None]
  - RECTAL OBSTRUCTION [None]
